FAERS Safety Report 26110545 (Version 1)
Quarter: 2025Q4

REPORT INFORMATION
  Report Type: Spontaneous
  Country: US (occurrence: US)
  Receive Date: 20251202
  Receipt Date: 20251202
  Transmission Date: 20260117
  Serious: Yes (Hospitalization)
  Sender: BOEHRINGER INGELHEIM
  Company Number: US-Komodo Health-a23aa00000CIJQHAA5

PATIENT
  Sex: Female

DRUGS (2)
  1. HERNEXEOS [Suspect]
     Active Substance: ZONGERTINIB
     Indication: HER2 mutant non-small cell lung cancer
     Dosage: DAILY DOSE: 180 MILLIGRAM(S)
  2. HERNEXEOS [Suspect]
     Active Substance: ZONGERTINIB
     Indication: Non-small cell lung cancer metastatic

REACTIONS (3)
  - Pain [Unknown]
  - Mobility decreased [Unknown]
  - Post procedural complication [Unknown]
